FAERS Safety Report 18869922 (Version 1)
Quarter: 2021Q1

REPORT INFORMATION
  Report Type: Spontaneous
  Country: CN (occurrence: CN)
  Receive Date: 20210209
  Receipt Date: 20210209
  Transmission Date: 20210420
  Serious: Yes (Other)
  Sender: FDA-Public Use
  Company Number: CN-PFIZER INC-2021096087

PATIENT
  Age: 27 Year
  Sex: Female
  Weight: 57.8 kg

DRUGS (1)
  1. METHYLPREDNISOLONE SODIUM SUCCINATE. [Suspect]
     Active Substance: METHYLPREDNISOLONE SODIUM SUCCINATE
     Dosage: 40 MG, 2X/DAY
     Route: 041
     Dates: start: 20201211

REACTIONS (6)
  - Ocular hyperaemia [Recovered/Resolved]
  - Pyrexia [Recovered/Resolved]
  - Rash vesicular [Recovered/Resolved]
  - Skin ulcer [Recovering/Resolving]
  - Skin injury [Recovering/Resolving]
  - Erythema multiforme [Recovering/Resolving]

NARRATIVE: CASE EVENT DATE: 202012
